FAERS Safety Report 18433221 (Version 3)
Quarter: 2020Q4

REPORT INFORMATION
  Report Type: Spontaneous
  Country: BR (occurrence: BR)
  Receive Date: 20201027
  Receipt Date: 20201210
  Transmission Date: 20210114
  Serious: No
  Sender: FDA-Public Use
  Company Number: BR-PFIZER INC-2020406709

PATIENT
  Sex: Female

DRUGS (1)
  1. GENOTROPIN [Suspect]
     Active Substance: SOMATROPIN
     Dosage: UNK

REACTIONS (5)
  - Wrong technique in device usage process [Unknown]
  - Device breakage [Unknown]
  - Exposure via skin contact [Unknown]
  - Product odour abnormal [Unknown]
  - Accidental exposure to product [Unknown]
